FAERS Safety Report 23690825 (Version 1)
Quarter: 2024Q2

REPORT INFORMATION
  Report Type: Spontaneous
  Country: US (occurrence: None)
  Receive Date: 20240401
  Receipt Date: 20240401
  Transmission Date: 20240715
  Serious: Yes (Death, Hospitalization, Other)
  Sender: FDA-Public Use
  Company Number: US-ROCHE-3530968

PATIENT
  Sex: Male
  Weight: 70.37 kg

DRUGS (7)
  1. TECENTRIQ [Suspect]
     Active Substance: ATEZOLIZUMAB
     Indication: Lung neoplasm malignant
     Dosage: START DATE: 23/JAN/2024, RECENT DOSE: 24/JAN/2024 TO 25/JAN/2024
     Route: 042
  2. PARAPLATIN [Concomitant]
     Active Substance: CARBOPLATIN
  3. ETOPOSIDE PHOSPHATE [Concomitant]
     Active Substance: ETOPOSIDE PHOSPHATE
  4. TORSEMIDE [Concomitant]
     Active Substance: TORSEMIDE
  5. TAMSULOSIN HYDROCHLORIDE [Concomitant]
     Active Substance: TAMSULOSIN HYDROCHLORIDE
  6. LUBIPROSTONE [Concomitant]
     Active Substance: LUBIPROSTONE
  7. MIRTAZAPINE [Concomitant]
     Active Substance: MIRTAZAPINE

REACTIONS (6)
  - Cardiac arrest [Fatal]
  - Pneumothorax [Recovered/Resolved]
  - Ill-defined disorder [Recovered/Resolved]
  - White blood cell count decreased [Recovered/Resolved]
  - Vein disorder [Recovered/Resolved]
  - Pulmonary oedema [Recovered/Resolved]

NARRATIVE: CASE EVENT DATE: 20240101
